FAERS Safety Report 13993201 (Version 1)
Quarter: 2017Q3

REPORT INFORMATION
  Report Type: Spontaneous
  Country: FR (occurrence: FR)
  Receive Date: 20170920
  Receipt Date: 20170920
  Transmission Date: 20171128
  Serious: Yes (Other)
  Sender: FDA-Public Use
  Company Number: FR-BAYER-2017-178639

PATIENT
  Age: 35 Year
  Sex: Female

DRUGS (1)
  1. MIRENA [Suspect]
     Active Substance: LEVONORGESTREL
     Indication: CHEMICAL CONTRACEPTION
     Dosage: 20 ?G, CONT
     Route: 015
     Dates: start: 20141107, end: 20160531

REACTIONS (4)
  - Premenstrual syndrome [Recovered/Resolved]
  - Libido decreased [Recovered/Resolved]
  - Depression [Recovered/Resolved]
  - Increased appetite [Recovered/Resolved]

NARRATIVE: CASE EVENT DATE: 20141207
